FAERS Safety Report 14346569 (Version 1)
Quarter: 2018Q1

REPORT INFORMATION
  Report Type: Spontaneous
  Country: US (occurrence: US)
  Receive Date: 20180103
  Receipt Date: 20180103
  Transmission Date: 20180509
  Serious: No
  Sender: FDA-Public Use
  Company Number: US-BAYER-2017-251766

PATIENT
  Age: 57 Year
  Sex: Female
  Weight: 76.96 kg

DRUGS (4)
  1. BISACODYL. [Concomitant]
     Active Substance: BISACODYL
  2. MIRALAX [Suspect]
     Active Substance: POLYETHYLENE GLYCOL 3350
     Indication: GASTROINTESTINAL HYPOMOTILITY
     Dosage: UNK
     Dates: start: 20171228
  3. MIRALAX [Suspect]
     Active Substance: POLYETHYLENE GLYCOL 3350
     Indication: GASTROINTESTINAL HYPOMOTILITY
     Dosage: UNK, ONCE
     Dates: start: 20171221
  4. MIRALAX [Suspect]
     Active Substance: POLYETHYLENE GLYCOL 3350
     Indication: GASTROINTESTINAL HYPOMOTILITY
     Dosage: 1 DF(CAPFUL), QOD
     Route: 048
     Dates: start: 2005

REACTIONS (6)
  - Product taste abnormal [Unknown]
  - Circumstance or information capable of leading to medication error [Unknown]
  - Poor quality drug administered [Unknown]
  - Drug administration error [Unknown]
  - Product use in unapproved indication [Unknown]
  - Off label use [Unknown]

NARRATIVE: CASE EVENT DATE: 2007
